FAERS Safety Report 6255431-4 (Version None)
Quarter: 2009Q3

REPORT INFORMATION
  Report Type: 
  Country: None (occurrence: None)
  Receive Date: 20090702
  Receipt Date: 20090625
  Transmission Date: 20100115
  Serious: Yes (Hospitalization)
  Sender: FDA-Public Use
  Company Number: PHHO2009SE06919

PATIENT
  Sex: Male

DRUGS (1)
  1. ALISKIREN ALI+TAB [Suspect]
     Indication: ACUTE MYOCARDIAL INFARCTION
     Dosage: 300 MG, QD
     Route: 048
     Dates: start: 20080909

REACTIONS (2)
  - ATRIAL FIBRILLATION [None]
  - SYNCOPE [None]
